FAERS Safety Report 19051428 (Version 1)
Quarter: 2021Q1

REPORT INFORMATION
  Report Type: Spontaneous
  Country: US (occurrence: US)
  Receive Date: 20210324
  Receipt Date: 20210324
  Transmission Date: 20210420
  Serious: Yes (Other)
  Sender: FDA-Public Use
  Company Number: US-SUN PHARMACEUTICAL INDUSTRIES LTD-2021R1-287095

PATIENT
  Age: 22 Year
  Sex: Male

DRUGS (1)
  1. LOPERAMIDE [Suspect]
     Active Substance: LOPERAMIDE
     Indication: ANXIETY
     Dosage: 600 MILLIGRAM , 2?3 PER WEEK
     Route: 065

REACTIONS (3)
  - Brugada syndrome [Unknown]
  - Intentional product misuse [Unknown]
  - Torsade de pointes [Unknown]
